FAERS Safety Report 19151964 (Version 1)
Quarter: 2021Q2

REPORT INFORMATION
  Report Type: Spontaneous
  Country: US (occurrence: US)
  Receive Date: 20210419
  Receipt Date: 20210419
  Transmission Date: 20210717
  Serious: Yes (Other)
  Sender: FDA-Public Use
  Company Number: US-DRREDDYS-USA/USA/21/0134450

PATIENT
  Age: 51 Year
  Sex: Female

DRUGS (7)
  1. DOCETAXEL. [Suspect]
     Active Substance: DOCETAXEL
     Indication: INVASIVE DUCTAL BREAST CARCINOMA
  2. CARVEDILOL. [Concomitant]
     Active Substance: CARVEDILOL
     Indication: PRODUCT USED FOR UNKNOWN INDICATION
  3. CARBOPLATIN. [Suspect]
     Active Substance: CARBOPLATIN
     Indication: INVASIVE DUCTAL BREAST CARCINOMA
     Dosage: CARBOPLATIN AREA UNDER THE PLASMA CONCENTRATION?TIME CURVE (AUC) 6
  4. FUROSEMIDE. [Concomitant]
     Active Substance: FUROSEMIDE
     Indication: PRODUCT USED FOR UNKNOWN INDICATION
  5. PERTUZUMAB. [Concomitant]
     Active Substance: PERTUZUMAB
     Dosage: 840 MG LOADING DOSE FOLLOWED BY 420 MG EVERY 21 DAYS
  6. TRASTUZUMAB. [Concomitant]
     Active Substance: TRASTUZUMAB
     Indication: INVASIVE DUCTAL BREAST CARCINOMA
  7. PERTUZUMAB. [Concomitant]
     Active Substance: PERTUZUMAB
     Indication: INVASIVE DUCTAL BREAST CARCINOMA
     Dosage: 840 MG LOADING DOSE FOLLOWED BY 420 MG EVERY 21 DAYS

REACTIONS (3)
  - Fatigue [Unknown]
  - Diarrhoea [Unknown]
  - Neuropathy peripheral [Unknown]
